FAERS Safety Report 5896333-2 (Version None)
Quarter: 2008Q3

REPORT INFORMATION
  Report Type: 
  Country: None (occurrence: None)
  Receive Date: 20080924
  Receipt Date: 20080312
  Transmission Date: 20090109
  Serious: Yes (Other)
  Sender: FDA-Public Use
  Company Number: US-ASTRAZENECA-2007UW20782

PATIENT
  Age: 12632 Day
  Sex: Male
  Weight: 93 kg

DRUGS (4)
  1. SEROQUEL [Suspect]
     Indication: MENTAL DISORDER
     Route: 048
     Dates: start: 20031031, end: 20040401
  2. SEROQUEL [Suspect]
     Indication: ANXIETY
     Route: 048
     Dates: start: 20031031, end: 20040401
  3. SEROQUEL [Suspect]
     Indication: DEPRESSION
     Route: 048
     Dates: start: 20031031, end: 20040401
  4. GEODON [Concomitant]
     Dosage: 20-40 MG DAILY
     Dates: start: 20040401, end: 20040601

REACTIONS (4)
  - BLOOD CHOLESTEROL INCREASED [None]
  - DEPRESSION [None]
  - DIABETES MELLITUS [None]
  - SUICIDAL IDEATION [None]
